FAERS Safety Report 19605690 (Version 1)
Quarter: 2021Q3

REPORT INFORMATION
  Report Type: Spontaneous
  Country: US (occurrence: US)
  Receive Date: 20210723
  Receipt Date: 20210723
  Transmission Date: 20211014
  Serious: No
  Sender: FDA-Public Use
  Company Number: US-SUNOVION-2021SUN002495

PATIENT
  Sex: Female

DRUGS (2)
  1. LATUDA [Suspect]
     Active Substance: LURASIDONE HYDROCHLORIDE
     Dosage: 20 MG
     Route: 048
     Dates: start: 20210504, end: 20210504
  2. LATUDA [Suspect]
     Active Substance: LURASIDONE HYDROCHLORIDE
     Indication: AFFECTIVE DISORDER
     Dosage: 40 MG, QD (2 TABLETS 20MG)
     Route: 048
     Dates: start: 20210528

REACTIONS (3)
  - Defiant behaviour [Not Recovered/Not Resolved]
  - Irritability [Not Recovered/Not Resolved]
  - Off label use [Unknown]
